FAERS Safety Report 8591367-1 (Version None)
Quarter: 2012Q3

REPORT INFORMATION
  Report Type: 
  Country: None (occurrence: None)
  Receive Date: 20120725
  Receipt Date: 20120718
  Transmission Date: 20120928
  Serious: Yes (Other)
  Sender: FDA-Public Use
  Company Number: 2011030082

PATIENT
  Sex: Female
  Weight: 155 kg

DRUGS (16)
  1. HIZENTRA [Suspect]
     Indication: IMMUNODEFICIENCY COMMON VARIABLE
     Dosage: (12 G 1X/WEEK, 4 GM 20 ML VIAL; 60 ML WEEKLY IN 3-4 SITES SUBCUTANEOUS)
     Route: 058
     Dates: start: 20101213, end: 20110930
  2. GLUCOSAMINE CHONDROITIN (CHONDROITIN SODIUM SULFATE W/GLUCOSAMINE HCL) [Concomitant]
  3. PREDNISONE [Concomitant]
  4. COREG [Concomitant]
  5. XOLAIR [Concomitant]
  6. WARFARIN SODIUM [Concomitant]
  7. GUAIFENESIN [Concomitant]
  8. XOPENEX HFA (LEVOSALBUTAMOL) [Concomitant]
  9. CYCLOBENZAPRINE [Concomitant]
  10. EVISTA [Concomitant]
  11. MAGOX (MAGNESIUM OXIDE) [Concomitant]
  12. POTASSIUM CHLORIDE [Concomitant]
  13. CALCIUM [Concomitant]
  14. SULINDAC [Concomitant]
  15. ALVESCO [Concomitant]
  16. FISH OIL [Concomitant]

REACTIONS (5)
  - GLOMERULONEPHRITIS [None]
  - RENAL FAILURE [None]
  - HAEMATURIA [None]
  - RENAL ARTERIOSCLEROSIS [None]
  - MIXED CONNECTIVE TISSUE DISEASE [None]
